FAERS Safety Report 9073624 (Version 1)
Quarter: 2013Q1

REPORT INFORMATION
  Report Type: Report from Study
  Country: US (occurrence: US)
  Receive Date: 20130129
  Receipt Date: 20130129
  Transmission Date: 20140127
  Serious: No
  Sender: FDA-Public Use
  Company Number: US-ABBOTT-12P-163-0921483-00

PATIENT
  Age: 47 Year
  Sex: Female

DRUGS (8)
  1. HUMIRA 40 MG/0.8 ML PEN [Suspect]
     Indication: CROHN^S DISEASE
     Dosage: 160 MG
     Dates: start: 20120306, end: 20120306
  2. HUMIRA 40 MG/0.8 ML PEN [Suspect]
     Dosage: 80 MG
     Dates: start: 20120320
  3. PENTASA [Concomitant]
     Indication: CROHN^S DISEASE
  4. SINGULAIR [Concomitant]
     Indication: HYPERSENSITIVITY
  5. PROTONIX [Concomitant]
     Indication: GASTROOESOPHAGEAL REFLUX DISEASE
  6. LEXAPRO [Concomitant]
     Indication: DEPRESSION
  7. DIOVAN HCT [Concomitant]
     Indication: HYPERTENSION
  8. PRAVASTATIN [Concomitant]
     Indication: BLOOD CHOLESTEROL INCREASED

REACTIONS (5)
  - Lymphadenopathy [Unknown]
  - Oral pain [Not Recovered/Not Resolved]
  - Ear pain [Unknown]
  - Oropharyngeal pain [Unknown]
  - Hypersensitivity [Unknown]
